FAERS Safety Report 6660657-1 (Version None)
Quarter: 2010Q1

REPORT INFORMATION
  Report Type: 
  Country: None (occurrence: None)
  Receive Date: 20100331
  Receipt Date: 20100322
  Transmission Date: 20100710
  Serious: Yes (Other)
  Sender: FDA-Public Use
  Company Number: US-SANOFI-AVENTIS-2010SA016665

PATIENT
  Age: 43 Year
  Sex: Male

DRUGS (3)
  1. AMBIEN CR [Suspect]
     Indication: INSOMNIA
     Route: 048
     Dates: start: 20100301, end: 20100301
  2. EFFEXOR [Concomitant]
  3. SEROTONIN ANTAGONISTS [Concomitant]
     Indication: MIGRAINE

REACTIONS (4)
  - AGGRESSION [None]
  - AMNESIA [None]
  - SELF INJURIOUS BEHAVIOUR [None]
  - SOMNAMBULISM [None]
